FAERS Safety Report 4803928-3 (Version None)
Quarter: 2005Q3

REPORT INFORMATION
  Report Type: 
  Country: None (occurrence: None)
  Receive Date: 20050920
  Receipt Date: 20050527
  Transmission Date: 20060218
  Serious: No
  Sender: FDA-Public Use
  Company Number: US-YAMANOUCHI-YPA20050279

PATIENT
  Age: 51 Year
  Sex: Female
  Weight: 57.6068 kg

DRUGS (6)
  1. VESICARE [Suspect]
     Indication: URINARY INCONTINENCE
     Dosage: 5 MG QD PO
     Route: 048
     Dates: start: 20050524, end: 20050525
  2. VESICARE [Suspect]
     Indication: URINARY INCONTINENCE
     Dosage: 10 MG QD PO
     Route: 048
     Dates: start: 20050526
  3. DETROL [Concomitant]
  4. CIPRO [Concomitant]
  5. AVONEX [Concomitant]
  6. EXCEDRIN (MIGRAINE) [Concomitant]

REACTIONS (1)
  - DRUG INEFFECTIVE [None]
